FAERS Safety Report 6287043-0 (Version None)
Quarter: 2009Q3

REPORT INFORMATION
  Report Type: 
  Country: None (occurrence: None)
  Receive Date: 20090727
  Receipt Date: 20090727
  Transmission Date: 20100115
  Serious: Yes (Other)
  Sender: FDA-Public Use
  Company Number: None

PATIENT
  Age: 80 Year
  Sex: Female
  Weight: 87.9978 kg

DRUGS (1)
  1. MYCOPHENOLATE MOFETIL [Suspect]
     Indication: MYASTHENIA GRAVIS
     Dosage: 500 MG TABS TWICE A DAY TABLET
     Dates: start: 20090613, end: 20090713

REACTIONS (3)
  - CONDITION AGGRAVATED [None]
  - DRY MOUTH [None]
  - MUSCLE SPASMS [None]
